FAERS Safety Report 8272653-1 (Version None)
Quarter: 2012Q2

REPORT INFORMATION
  Report Type: 
  Country: None (occurrence: None)
  Receive Date: 20120410
  Receipt Date: 20120330
  Transmission Date: 20120825
  Serious: Yes (Life-Threatening)
  Sender: FDA-Public Use
  Company Number: JP-BRISTOL-MYERS SQUIBB COMPANY-16376246

PATIENT
  Age: 74 Year
  Sex: Male

DRUGS (3)
  1. MITOMYCIN [Suspect]
     Dosage: MITOMYCIN INJECTION 10MG
     Route: 043
     Dates: start: 20111208, end: 20111208
  2. DUTASTERIDE [Concomitant]
     Route: 048
     Dates: start: 20110627
  3. URIEF [Concomitant]
     Dosage: 1DF=2DF
     Route: 048

REACTIONS (1)
  - INTERSTITIAL LUNG DISEASE [None]
